FAERS Safety Report 9642783 (Version 1)
Quarter: 2013Q4

REPORT INFORMATION
  Report Type: Spontaneous
  Country: CN (occurrence: CN)
  Receive Date: 20131024
  Receipt Date: 20131024
  Transmission Date: 20140711
  Serious: Yes (Hospitalization)
  Sender: FDA-Public Use
  Company Number: CN-SA-2013SA106924

PATIENT
  Age: 59 Year
  Sex: Male

DRUGS (1)
  1. LANTUS [Suspect]
     Indication: PRODUCT USED FOR UNKNOWN INDICATION
     Dosage: STRENGTH-100 IU/ML
     Route: 058

REACTIONS (5)
  - Pain in extremity [Unknown]
  - Local swelling [Unknown]
  - Swelling face [Unknown]
  - Eye swelling [Unknown]
  - Blood glucose increased [Unknown]
